FAERS Safety Report 5109994-2 (Version None)
Quarter: 2006Q3

REPORT INFORMATION
  Report Type: 
  Country: None (occurrence: None)
  Receive Date: 20060918
  Receipt Date: 20060918
  Transmission Date: 20061208
  Serious: Yes (Other)
  Sender: FDA-Public Use
  Company Number: None

PATIENT
  Sex: Female
  Weight: 92.5338 kg

DRUGS (2)
  1. PROMETHAZINE [Suspect]
     Indication: NAUSEA
     Dosage: 12.5 MG 24 H PRN NAUSEA IV
     Route: 040
     Dates: start: 20060914
  2. PROMETHAZINE [Suspect]
     Indication: POST PROCEDURAL COMPLICATION
     Dosage: 12.5 MG 24 H PRN NAUSEA IV
     Route: 040
     Dates: start: 20060914

REACTIONS (2)
  - DYSPNOEA [None]
  - THROAT TIGHTNESS [None]
